FAERS Safety Report 11806892 (Version 1)
Quarter: 2015Q4

REPORT INFORMATION
  Report Type: Spontaneous
  Country: GB (occurrence: GB)
  Receive Date: 20151207
  Receipt Date: 20151207
  Transmission Date: 20160305
  Serious: Yes (Hospitalization)
  Sender: FDA-Public Use
  Company Number: GB-ASTRAZENECA-2015SF21596

PATIENT
  Age: 44 Year
  Sex: Female
  Weight: 65 kg

DRUGS (33)
  1. COLOBREATHE [Concomitant]
     Route: 055
  2. COLECALCIFEROL [Concomitant]
     Active Substance: CHOLECALCIFEROL
     Route: 048
  3. NEORAL [Concomitant]
     Active Substance: CYCLOSPORINE
     Dosage: 100 MG IN THE MORNING AND 75 MG AT NIGHT
     Route: 048
  4. CICLOSPORIN [Concomitant]
     Active Substance: CYCLOSPORINE
  5. CIPROFLOXACIN. [Concomitant]
     Active Substance: CIPROFLOXACIN
     Route: 065
     Dates: start: 20150925
  6. ATORVASTATIN [Concomitant]
     Active Substance: ATORVASTATIN
     Route: 048
  7. AVAMYS [Concomitant]
     Active Substance: FLUTICASONE FUROATE
     Route: 045
  8. HUMULIN S [Concomitant]
     Dosage: 10/9 UNITS PER BREAKFAST/LUNCH EVERY DAY
     Route: 058
  9. INSULIN [Concomitant]
     Active Substance: INSULIN NOS
     Indication: DIABETES MELLITUS
     Route: 065
  10. MYCOPHENOLATE MOFETIL. [Concomitant]
     Active Substance: MYCOPHENOLATE MOFETIL
     Route: 048
  11. RISEDRONATE [Concomitant]
     Active Substance: RISEDRONATE SODIUM
     Route: 048
  12. VITAMIN E [Concomitant]
     Active Substance: .ALPHA.-TOCOPHEROL
     Route: 048
  13. ALLOPURINOL. [Concomitant]
     Active Substance: ALLOPURINOL
     Route: 048
  14. EZETIMIBE. [Concomitant]
     Active Substance: EZETIMIBE
     Indication: BLOOD CHOLESTEROL INCREASED
     Route: 048
  15. METOPROLOL [Concomitant]
     Active Substance: METOPROLOL
     Route: 048
  16. CO-AMOXICLAV [Concomitant]
     Active Substance: AMOXICILLIN\CLAVULANIC ACID
     Route: 065
     Dates: start: 20150925
  17. FOLIC ACID. [Concomitant]
     Active Substance: FOLIC ACID
     Route: 048
  18. PREDNISOLONE. [Concomitant]
     Active Substance: PREDNISOLONE
     Route: 048
  19. MEROPENEM. [Suspect]
     Active Substance: MEROPENEM
     Route: 042
     Dates: start: 201510, end: 201510
  20. OMEPRAZOLE. [Concomitant]
     Active Substance: OMEPRAZOLE
     Route: 048
  21. RANITIDINE [Concomitant]
     Active Substance: RANITIDINE\RANITIDINE HYDROCHLORIDE
     Route: 048
  22. CEFTAZIDIME. [Suspect]
     Active Substance: CEFTAZIDIME
     Indication: CYSTIC FIBROSIS
     Route: 042
     Dates: start: 20151012, end: 20151019
  23. COLOMYCIN [Concomitant]
     Active Substance: COLISTIN
     Dates: start: 20151012, end: 20151015
  24. HUMALOG [Concomitant]
     Active Substance: INSULIN LISPRO
     Route: 058
  25. NYSTATIN. [Concomitant]
     Active Substance: NYSTATIN
     Route: 048
  26. SERTRALINE [Concomitant]
     Active Substance: SERTRALINE HYDROCHLORIDE
     Route: 048
  27. AZITHROMYCIN [Concomitant]
     Active Substance: AZITHROMYCIN ANHYDROUS
     Route: 048
  28. CINACALCET [Concomitant]
     Active Substance: CINACALCET
     Route: 048
  29. COTRIMOXAZOLE [Concomitant]
     Active Substance: SULFAMETHOXAZOLE\TRIMETHOPRIM
     Route: 048
  30. CREON [Concomitant]
     Active Substance: PANCRELIPASE AMYLASE\PANCRELIPASE LIPASE\PANCRELIPASE PROTEASE
     Dosage: 25000 WITH FOOD
     Route: 048
  31. SALBUTAMOL [Concomitant]
     Active Substance: ALBUTEROL
     Dosage: 2 DF, EVOHALER
     Route: 055
  32. SALBUTAMOL [Concomitant]
     Active Substance: ALBUTEROL
     Dosage: 2.5-5 MG, NEBULISER
     Route: 055
  33. SYMBICORT [Concomitant]
     Active Substance: BUDESONIDE\FORMOTEROL FUMARATE DIHYDRATE
     Dosage: 200/6 MCG, 2 PUFFS TWO TIMES A DAY
     Route: 055

REACTIONS (5)
  - Paranoia [Recovered/Resolved]
  - Toxicity to various agents [Recovered/Resolved]
  - Hallucinations, mixed [Recovered/Resolved]
  - Myoclonus [Recovered/Resolved]
  - Tardive dyskinesia [Recovered/Resolved]

NARRATIVE: CASE EVENT DATE: 20151012
